FAERS Safety Report 14847251 (Version 2)
Quarter: 2019Q4

REPORT INFORMATION
  Report Type: Report from Study
  Country: CA (occurrence: CA)
  Receive Date: 20180504
  Receipt Date: 20191025
  Transmission Date: 20200122
  Serious: Yes (Death, Other)
  Sender: FDA-Public Use
  Company Number: PHHY2017CA016083

PATIENT
  Age: 51 Year
  Sex: Male

DRUGS (4)
  1. MEKINIST [Suspect]
     Active Substance: TRAMETINIB DIMETHYL SULFOXIDE
     Indication: METASTATIC MALIGNANT MELANOMA
     Dosage: 2 MG, QD
     Route: 048
     Dates: start: 20170102
  2. TAFINLAR [Suspect]
     Active Substance: DABRAFENIB MESYLATE
     Indication: METASTATIC MALIGNANT MELANOMA
     Dosage: 300 MG, QD
     Route: 048
     Dates: start: 20170102
  3. TAFINLAR [Suspect]
     Active Substance: DABRAFENIB MESYLATE
     Dosage: 300 MG
     Route: 048
     Dates: start: 20170112
  4. MEKINIST [Suspect]
     Active Substance: TRAMETINIB DIMETHYL SULFOXIDE
     Dosage: 2 MG
     Route: 048
     Dates: start: 20170112

REACTIONS (20)
  - Death [Fatal]
  - Hepatic enzyme abnormal [Unknown]
  - Vomiting [Unknown]
  - Blood lactate dehydrogenase increased [Unknown]
  - Metastases to central nervous system [Unknown]
  - Blood testosterone decreased [Unknown]
  - Hypothyroidism [Unknown]
  - Pruritus [Unknown]
  - Taste disorder [Unknown]
  - Decreased appetite [Unknown]
  - Sarcoidosis [Unknown]
  - Vitiligo [Unknown]
  - Weight decreased [Unknown]
  - Cortisol abnormal [Unknown]
  - Fatigue [Unknown]
  - Hypophysitis [Unknown]
  - Lymphadenopathy [Unknown]
  - Drug resistance [Unknown]
  - Haemoglobin decreased [Unknown]
  - Hilar lymphadenopathy [Unknown]

NARRATIVE: CASE EVENT DATE: 20191004
